FAERS Safety Report 13488929 (Version 2)
Quarter: 2021Q3

REPORT INFORMATION
  Report Type: Report from Study
  Country: US (occurrence: US)
  Receive Date: 20170427
  Receipt Date: 20210927
  Transmission Date: 20211014
  Serious: Yes (Other)
  Sender: FDA-Public Use
  Company Number: US-PFIZER INC-2017179002

PATIENT
  Age: 64 Year
  Sex: Female

DRUGS (4)
  1. FASLODEX [Concomitant]
     Active Substance: FULVESTRANT
     Dosage: UNK
  2. IBRANCE [Suspect]
     Active Substance: PALBOCICLIB
     Indication: BREAST CANCER FEMALE
     Dosage: 125 MG, DAILY
     Route: 048
     Dates: start: 20160817
  3. IBRANCE [Suspect]
     Active Substance: PALBOCICLIB
     Dosage: 125 MG, DAILY
     Route: 048
     Dates: start: 20170427
  4. IBRANCE [Suspect]
     Active Substance: PALBOCICLIB
     Dosage: 125 MG, CYCLIC (DAILY FOR 21 OF 28 DAYS)
     Route: 048
     Dates: start: 20210901

REACTIONS (7)
  - Respiratory tract congestion [Unknown]
  - Osteomyelitis [Unknown]
  - Myelosuppression [Unknown]
  - Anaemia [Unknown]
  - Fatigue [Unknown]
  - Alopecia [Unknown]
  - Pyrexia [Recovered/Resolved]
